FAERS Safety Report 23951934 (Version 2)
Quarter: 2024Q2

REPORT INFORMATION
  Report Type: Spontaneous
  Country: US (occurrence: US)
  Receive Date: 20240607
  Receipt Date: 20240613
  Transmission Date: 20240716
  Serious: No
  Sender: FDA-Public Use
  Company Number: US-BIOMARINAP-US-2024-158413

PATIENT

DRUGS (2)
  1. VIMIZIM [Suspect]
     Active Substance: ELOSULFASE ALFA
     Indication: Mucopolysaccharidosis IV
     Dosage: 150 MILLIGRAM, QW
     Route: 042
     Dates: start: 202310
  2. GEBAUERS PAIN EASE [Concomitant]
     Indication: Product used for unknown indication

REACTIONS (1)
  - Ear infection [Unknown]
